FAERS Safety Report 4719111-6 (Version None)
Quarter: 2005Q3

REPORT INFORMATION
  Report Type: 
  Country: None (occurrence: None)
  Receive Date: 20050719
  Receipt Date: 20050704
  Transmission Date: 20060218
  Serious: Yes (Disabling)
  Sender: FDA-Public Use
  Company Number: 2005-0008479

PATIENT
  Age: 28 Year
  Sex: Female

DRUGS (9)
  1. TENOFOVIR DISOPROXIL FUMARATE (TENOFOVIR DISOPROXIL FUMARATE) [Suspect]
     Indication: HIV INFECTION
  2. LAMIVUDINE [Suspect]
     Indication: HIV INFECTION
  3. ZIDOVUDINE [Suspect]
     Indication: HIV INFECTION
  4. ISONIAZID [Suspect]
  5. STREPTOMYCIN [Concomitant]
  6. PYRAZINAMIDE [Concomitant]
  7. ETHAMBUTOL (ETHAMBUTOL) [Concomitant]
  8. RIFAMPICIN [Concomitant]
  9. PYRIDOXINE (PYRIDOXINE) [Concomitant]

REACTIONS (6)
  - ACTIVITIES OF DAILY LIVING IMPAIRED [None]
  - ARTHRALGIA [None]
  - MYALGIA [None]
  - MYOPATHY [None]
  - OSTEOARTHRITIS [None]
  - THERAPY NON-RESPONDER [None]
